FAERS Safety Report 8913299 (Version 1)
Quarter: 2012Q4

REPORT INFORMATION
  Report Type: Spontaneous
  Country: US (occurrence: None)
  Receive Date: 20121114
  Receipt Date: 20121114
  Transmission Date: 20130627
  Serious: Yes (Hospitalization, Other)
  Sender: FDA-Public Use
  Company Number: ACO_32764_2012

PATIENT
  Age: 78 Year
  Sex: Female

DRUGS (11)
  1. AMPYRA (DALFAMPRIDINE) TABLET, 10MG [Suspect]
     Indication: GAIT DISTURBANCE
     Route: 048
     Dates: start: 201008
  2. AMPYRA (DALFAMPRIDINE) TABLET, 10MG [Suspect]
     Indication: GAIT DISTURBANCE
     Route: 048
     Dates: start: 201107, end: 20110731
  3. AMPYRA (DALFAMPRIDINE) TABLET, 10MG [Suspect]
     Indication: GAIT DISTURBANCE
     Route: 048
     Dates: start: 20121004, end: 20121012
  4. REVLIMID [Suspect]
     Indication: DRUG USE FOR UNKNOWN INDICATION
  5. AMANTADINE (AMANTADINE HYDROCHLORIDE) [Concomitant]
  6. HYDROCHLOROTHIAZIDE [Concomitant]
  7. WARFARIN [Concomitant]
  8. ALENDRONATE (ALENDRONATE SODIUM) [Concomitant]
  9. GABAPENTIN [Concomitant]
  10. TRAZODONE [Concomitant]
  11. CALCIUM WITH VITAMIN D (CALCIUM CARBONATE, COLECALCIFEROL) [Concomitant]

REACTIONS (7)
  - Glomerular filtration rate decreased [None]
  - Heart rate increased [None]
  - Urinary tract infection [None]
  - Asthenia [None]
  - Activities of daily living impaired [None]
  - Impaired driving ability [None]
  - Dizziness [None]
